FAERS Safety Report 4615279-0 (Version None)
Quarter: 2005Q1

REPORT INFORMATION
  Report Type: 
  Country: None (occurrence: None)
  Receive Date: 20050317
  Receipt Date: 20050308
  Transmission Date: 20050727
  Serious: Yes (Death, Hospitalization)
  Sender: FDA-Public Use
  Company Number: 2005RL000020

PATIENT
  Age: 77 Year
  Sex: Female

DRUGS (4)
  1. PROPAFENONE HCL [Suspect]
     Indication: BUNDLE BRANCH BLOCK
     Dosage: 300 MG;QD;PO
     Route: 048
     Dates: start: 20050101
  2. PROPRANOLOL [Concomitant]
  3. HYDROCHLORIDE [Concomitant]
  4. BROMAZEPAM [Concomitant]

REACTIONS (3)
  - DIARRHOEA [None]
  - MALAISE [None]
  - PULMONARY OEDEMA [None]
